FAERS Safety Report 6987307-9 (Version None)
Quarter: 2010Q3

REPORT INFORMATION
  Report Type: 
  Country: None (occurrence: None)
  Receive Date: 20100827
  Receipt Date: 20100208
  Transmission Date: 20110219
  Serious: Yes (Hospitalization)
  Sender: FDA-Public Use
  Company Number: KADN20100009

PATIENT
  Age: 20 Year
  Sex: Female
  Weight: 58.9676 kg

DRUGS (3)
  1. KADIAN [Suspect]
     Indication: CYSTIC FIBROSIS
     Dosage: 60 MG, 2 IN 1 D, PER ORAL
     Route: 048
     Dates: start: 20090701, end: 20100101
  2. OXYCODONE HCL [Concomitant]
  3. SUBOXONE [Concomitant]

REACTIONS (2)
  - NAUSEA [None]
  - VOMITING [None]
